FAERS Safety Report 9349035 (Version 1)
Quarter: 2013Q2

REPORT INFORMATION
  Report Type: Report from Study
  Country: DE (occurrence: DE)
  Receive Date: 20130614
  Receipt Date: 20130614
  Transmission Date: 20140414
  Serious: Yes (Other)
  Sender: FDA-Public Use
  Company Number: DE-BAYER-2012-107755

PATIENT
  Sex: Female

DRUGS (5)
  1. EXTAVIA [Suspect]
     Indication: MULTIPLE SCLEROSIS
     Dosage: 125 ?G/ML, QOD
     Route: 058
     Dates: start: 20120919
  2. EXTAVIA [Suspect]
     Indication: MULTIPLE SCLEROSIS
     Dosage: 187.5 ?G/ML, QOD
     Route: 058
  3. EXTAVIA [Suspect]
     Indication: MULTIPLE SCLEROSIS
     Dosage: 250 ?G/ML, QOD
     Route: 058
  4. IBUPROFEN [IBUPROFEN] [Concomitant]
     Indication: PREMEDICATION
  5. IBUPROFEN [IBUPROFEN] [Concomitant]
     Indication: PREMEDICATION
     Dosage: 400 MG, UNK

REACTIONS (5)
  - Multiple sclerosis relapse [Not Recovered/Not Resolved]
  - Sensation of heaviness [Not Recovered/Not Resolved]
  - Acne [Recovered/Resolved]
  - Alopecia [Not Recovered/Not Resolved]
  - Chills [Recovered/Resolved]
